FAERS Safety Report 11692290 (Version 1)
Quarter: 2015Q4

REPORT INFORMATION
  Report Type: Spontaneous
  Country: US (occurrence: None)
  Receive Date: 20151102
  Receipt Date: 20151102
  Transmission Date: 20160304
  Serious: Yes (Hospitalization)
  Sender: FDA-Public Use
  Company Number: None

PATIENT
  Age: 39 Year
  Sex: Female
  Weight: 77.1 kg

DRUGS (13)
  1. RAFAXIMIN [Concomitant]
  2. MORPHINE [Concomitant]
     Active Substance: MORPHINE
  3. ATARAX [Concomitant]
     Active Substance: HYDROXYZINE\HYDROXYZINE HYDROCHLORIDE
  4. CIPROFLOXACIN. [Concomitant]
     Active Substance: CIPROFLOXACIN
  5. BENTYL [Concomitant]
     Active Substance: DICYCLOMINE HYDROCHLORIDE
  6. PROTONIX [Concomitant]
     Active Substance: PANTOPRAZOLE SODIUM
  7. OXYCODONE [Concomitant]
     Active Substance: OXYCODONE
  8. ZOFRAN [Concomitant]
     Active Substance: ONDANSETRON HYDROCHLORIDE
  9. SPIRONOLACTONE. [Concomitant]
     Active Substance: SPIRONOLACTONE
  10. HARVONI [Suspect]
     Active Substance: LEDIPASVIR\SOFOSBUVIR
     Indication: HEPATITIS C
     Dosage: 90-400 MG
     Route: 048
     Dates: start: 20150724
  11. DISPHENHYDRAMINE HCL [Concomitant]
  12. LASIX [Concomitant]
     Active Substance: FUROSEMIDE
  13. LACTULOSE. [Concomitant]
     Active Substance: LACTULOSE

REACTIONS (8)
  - Nausea [None]
  - Abdominal pain [None]
  - Ammonia increased [None]
  - Platelet count decreased [None]
  - Blood bilirubin increased [None]
  - Aspartate aminotransferase increased [None]
  - Vomiting [None]
  - International normalised ratio increased [None]

NARRATIVE: CASE EVENT DATE: 20150915
